FAERS Safety Report 18609836 (Version 1)
Quarter: 2020Q4

REPORT INFORMATION
  Report Type: Spontaneous
  Country: GB (occurrence: GB)
  Receive Date: 20201214
  Receipt Date: 20201214
  Transmission Date: 20210114
  Serious: Yes (Life-Threatening, Hospitalization, Other)
  Sender: FDA-Public Use
  Company Number: GB-B.BRAUN MEDICAL INC.-2102933

PATIENT
  Age: 56 Year
  Sex: Female

DRUGS (22)
  1. OMEPRAZOLE. [Concomitant]
     Active Substance: OMEPRAZOLE
  2. GABAPENTIN. [Concomitant]
     Active Substance: GABAPENTIN
  3. CYCLIZINE [Concomitant]
     Active Substance: CYCLIZINE
  4. IBUPROFEN. [Concomitant]
     Active Substance: IBUPROFEN
  5. LEVOTHYROXINE SODIUM. [Concomitant]
     Active Substance: LEVOTHYROXINE SODIUM
  6. PARACETAMOL [Concomitant]
     Active Substance: ACETAMINOPHEN
  7. CASPOFUNGIN ACETATE. [Concomitant]
     Active Substance: CASPOFUNGIN ACETATE
  8. FOLIC ACID. [Concomitant]
     Active Substance: FOLIC ACID
  9. FOSFOMYCIN [Concomitant]
     Active Substance: FOSFOMYCIN
  10. CHLORPHENAMINE [Concomitant]
     Active Substance: CHLORPHENIRAMINE MALEATE
  11. ONDANSETRON [Concomitant]
     Active Substance: ONDANSETRON
  12. TINZAPARIN SODIUM [Concomitant]
     Active Substance: TINZAPARIN SODIUM
  13. METRONIDAZOLE INJECTION USP (5 MG/ML) IN PAB? PLASTIC CONTAINER (NDA 0 [Suspect]
     Active Substance: METRONIDAZOLE
  14. LEVOFLOXACIN. [Concomitant]
     Active Substance: LEVOFLOXACIN
  15. FLUCONAZOLE. [Concomitant]
     Active Substance: FLUCONAZOLE
  16. MORPHINE SULPHATE [Concomitant]
     Active Substance: MORPHINE SULFATE
  17. VANCOMYCIN HYDROCHLORIDE. [Concomitant]
     Active Substance: VANCOMYCIN HYDROCHLORIDE
  18. CODEINE [Concomitant]
     Active Substance: CODEINE
  19. NYSTATIN. [Concomitant]
     Active Substance: NYSTATIN
  20. LINEZOLID. [Concomitant]
     Active Substance: LINEZOLID
  21. METOCLOPRAMIDE. [Concomitant]
     Active Substance: METOCLOPRAMIDE
  22. DILTIAZEM HYDROCHLORIDE. [Concomitant]
     Active Substance: DILTIAZEM HYDROCHLORIDE

REACTIONS (1)
  - Electrocardiogram QT prolonged [None]
